FAERS Safety Report 16211153 (Version 1)
Quarter: 2019Q2

REPORT INFORMATION
  Report Type: Spontaneous
  Country: FR (occurrence: FR)
  Receive Date: 20190418
  Receipt Date: 20190418
  Transmission Date: 20190711
  Serious: Yes (Life-Threatening, Hospitalization, Other)
  Sender: FDA-Public Use
  Company Number: FR-AUROBINDO-AUR-APL-2019-019787

PATIENT

DRUGS (8)
  1. VALIUM [Suspect]
     Active Substance: DIAZEPAM
     Indication: PRODUCT USED FOR UNKNOWN INDICATION
     Dosage: UNK, INCONNUE
     Route: 048
     Dates: start: 20180617, end: 20180617
  2. VENLAFAXINE [Suspect]
     Active Substance: VENLAFAXINE HYDROCHLORIDE
     Indication: DEPRESSION
     Dosage: UNK, INCONNUE
     Route: 065
     Dates: start: 20180617, end: 20180617
  3. ETOMIDATE. [Suspect]
     Active Substance: ETOMIDATE
     Indication: PRODUCT USED FOR UNKNOWN INDICATION
     Dosage: UNK, INCONNUE
     Route: 065
     Dates: start: 20180617, end: 20180617
  4. OLANZAPINE. [Suspect]
     Active Substance: OLANZAPINE
     Indication: PRODUCT USED FOR UNKNOWN INDICATION
     Dosage: UNK, INCONNUE
     Route: 048
     Dates: start: 20180617, end: 20180617
  5. PARACETAMOL [Suspect]
     Active Substance: ACETAMINOPHEN
     Indication: PRODUCT USED FOR UNKNOWN INDICATION
     Dosage: UNK, INCONNUE
     Route: 065
     Dates: start: 20180617, end: 20180617
  6. ZOPICLONE [Suspect]
     Active Substance: ZOPICLONE
     Indication: PRODUCT USED FOR UNKNOWN INDICATION
     Dosage: UNK, INCONNUE
     Route: 048
     Dates: start: 20180617, end: 20180617
  7. TERCIAN [Suspect]
     Active Substance: CYAMEMAZINE
     Indication: DEPRESSION
     Dosage: UNK, INCONNUE
     Route: 048
     Dates: start: 20180617, end: 20180617
  8. TRAMADOL. [Suspect]
     Active Substance: TRAMADOL
     Indication: PRODUCT USED FOR UNKNOWN INDICATION
     Dosage: UNK, INCONNUE
     Route: 065
     Dates: start: 20180617, end: 20180617

REACTIONS (2)
  - Coma [Recovered/Resolved]
  - Poisoning deliberate [Recovered/Resolved]

NARRATIVE: CASE EVENT DATE: 20180617
